FAERS Safety Report 7739441-3 (Version None)
Quarter: 2011Q3

REPORT INFORMATION
  Report Type: 
  Country: None (occurrence: None)
  Receive Date: 20110909
  Receipt Date: 20110907
  Transmission Date: 20111222
  Serious: No
  Sender: FDA-Public Use
  Company Number: US-PFIZER INC-2011209748

PATIENT
  Age: 54 Year
  Sex: Female

DRUGS (7)
  1. XANAX [Concomitant]
     Dosage: UNK
  2. SALBUTAMOL SULFATE [Concomitant]
     Dosage: UNK
  3. PRISTIQ [Suspect]
     Dosage: 50 MG
     Route: 048
     Dates: start: 20110819, end: 20110823
  4. NAPROXEN (ALEVE) [Concomitant]
     Indication: OSTEOARTHRITIS
     Dosage: UNK
  5. VILAZODONE HYDROCHLORIDE [Suspect]
     Indication: DEPRESSION
     Dosage: 10 MG, 1X/DAY
     Route: 048
     Dates: start: 20110821
  6. NEXIUM [Concomitant]
     Indication: GASTROOESOPHAGEAL REFLUX DISEASE
     Dosage: UNK
  7. PRISTIQ [Suspect]
     Indication: DEPRESSION
     Dosage: 100 MG, 1X/DAY
     Route: 048
     Dates: start: 20100101, end: 20110818

REACTIONS (3)
  - DIZZINESS [None]
  - HYPERHIDROSIS [None]
  - ASTHENIA [None]
